FAERS Safety Report 22879527 (Version 4)
Quarter: 2024Q2

REPORT INFORMATION
  Report Type: Report from Study
  Country: US (occurrence: US)
  Receive Date: 20230829
  Receipt Date: 20240517
  Transmission Date: 20240716
  Serious: Yes (Death, Hospitalization, Other)
  Sender: FDA-Public Use
  Company Number: US-BoehringerIngelheim-2023-BI-226217

PATIENT
  Age: 78 Year
  Sex: Female

DRUGS (6)
  1. OFEV [Suspect]
     Active Substance: NINTEDANIB
     Indication: Interstitial lung disease
     Route: 048
     Dates: start: 20210720
  2. OFEV [Suspect]
     Active Substance: NINTEDANIB
     Indication: Idiopathic pulmonary fibrosis
  3. ASPIRIN [Concomitant]
     Active Substance: ASPIRIN
     Indication: Cerebrovascular accident
     Route: 048
  4. ASPIRIN [Concomitant]
     Active Substance: ASPIRIN
     Indication: Deep vein thrombosis
  5. ELIQUIS [Concomitant]
     Active Substance: APIXABAN
     Indication: Cerebrovascular accident
  6. ELIQUIS [Concomitant]
     Active Substance: APIXABAN
     Indication: Deep vein thrombosis

REACTIONS (25)
  - Death [Fatal]
  - Haemorrhage [Not Recovered/Not Resolved]
  - Gastric antral vascular ectasia [Unknown]
  - Fall [Unknown]
  - Haemorrhage intracranial [Unknown]
  - Head injury [Unknown]
  - Subarachnoid haemorrhage [Unknown]
  - Fall [Unknown]
  - Diarrhoea [Not Recovered/Not Resolved]
  - Pneumonia [Unknown]
  - Diarrhoea haemorrhagic [Unknown]
  - Fall [Unknown]
  - Foot fracture [Unknown]
  - Hypoaesthesia [Unknown]
  - Asthenia [Unknown]
  - Vertigo [Unknown]
  - Fall [Unknown]
  - Arthralgia [Unknown]
  - Head injury [Unknown]
  - Fall [Unknown]
  - Head injury [Unknown]
  - Joint injury [Unknown]
  - Malabsorption [Unknown]
  - Vitamin B12 deficiency [Unknown]
  - Anaemia [Unknown]

NARRATIVE: CASE EVENT DATE: 20211001
